FAERS Safety Report 12109596 (Version 1)
Quarter: 2016Q1

REPORT INFORMATION
  Report Type: Spontaneous
  Country: US (occurrence: None)
  Receive Date: 20160223
  Receipt Date: 20160223
  Transmission Date: 20160526
  Serious: Yes (Other)
  Sender: FDA-Public Use
  Company Number: None

PATIENT
  Age: 86 Year
  Sex: Male
  Weight: 95.26 kg

DRUGS (4)
  1. VITAMIN D3 [Concomitant]
     Active Substance: CHOLECALCIFEROL
  2. LATANOPROST. [Concomitant]
     Active Substance: LATANOPROST
  3. CLONIDINE. [Concomitant]
     Active Substance: CLONIDINE
  4. LISINOPRIL 5 AND 10 MGS RITEAID AND VA SUPPLIED [Suspect]
     Active Substance: LISINOPRIL
     Indication: BLOOD PRESSURE MEASUREMENT
     Route: 048
     Dates: start: 20150907, end: 20151222

REACTIONS (15)
  - Eructation [None]
  - Tension [None]
  - Confusional state [None]
  - Drug ineffective [None]
  - Hypertension [None]
  - Flatulence [None]
  - Tremor [None]
  - Nausea [None]
  - Anxiety [None]
  - Balance disorder [None]
  - Headache [None]
  - Gastric disorder [None]
  - Fatigue [None]
  - Dyspnoea [None]
  - Restlessness [None]

NARRATIVE: CASE EVENT DATE: 20150907
